FAERS Safety Report 9758894 (Version 1)
Quarter: 2013Q4

REPORT INFORMATION
  Report Type: Spontaneous
  Country: US (occurrence: None)
  Receive Date: 20131216
  Receipt Date: 20131216
  Transmission Date: 20140711
  Serious: No
  Sender: FDA-Public Use
  Company Number: 163-POMAL-13041790(0)

PATIENT
  Age: 70 Year
  Sex: Male
  Weight: 67 kg

DRUGS (6)
  1. POMALYST(POMALIDOMIDE)(2 MILLIGRAM, CAPSULES) [Suspect]
     Dosage: 2 MG, 21 IN 21 D, PO
  2. COUMADIN (WARFARIN SODIUM) (UNKNOWN) [Concomitant]
  3. DEXAMETHASONE (DEXAMETHASONE) (UNKNOWN) [Concomitant]
  4. IMODIUM AD (LOPERAMIDE HYDROCHLORIDE) (UNKNOWN) [Concomitant]
  5. LIBRAX (LIBRAX) (UNKNOWN) [Concomitant]
  6. PRILOSEC (OMEPRAZOLE) (UNKNOWN) [Concomitant]

REACTIONS (1)
  - Diarrhoea [None]
